FAERS Safety Report 18533567 (Version 1)
Quarter: 2020Q4

REPORT INFORMATION
  Report Type: Spontaneous
  Country: US (occurrence: US)
  Receive Date: 20201120
  Receipt Date: 20201120
  Transmission Date: 20210114
  Serious: No
  Sender: FDA-Public Use
  Company Number: None

PATIENT

DRUGS (2)
  1. RUBIDIUM RB 82 [Suspect]
     Active Substance: RUBIDIUM RB-82
  2. CARDIOGEN-82 [Suspect]
     Active Substance: RUBIDIUM CHLORIDE RB-82
     Route: 042

REACTIONS (2)
  - Incorrect dose administered by device [None]
  - Device use error [None]
